FAERS Safety Report 16433031 (Version 3)
Quarter: 2019Q4

REPORT INFORMATION
  Report Type: Report from Study
  Country: US (occurrence: US)
  Receive Date: 20190614
  Receipt Date: 20191213
  Transmission Date: 20200122
  Serious: No
  Sender: FDA-Public Use
  Company Number: PHEH2019US025014

PATIENT
  Sex: Male

DRUGS (2)
  1. COSENTYX [Suspect]
     Active Substance: SECUKINUMAB
     Indication: PSORIATIC ARTHROPATHY
     Dosage: 300 MG, QW (FOR 5 WEEKS THEN 300 MG, Q4W)
     Route: 058
     Dates: start: 20190507
  2. COSENTYX [Suspect]
     Active Substance: SECUKINUMAB
     Indication: PSORIASIS
     Dosage: UNK
     Route: 058
     Dates: start: 20190503

REACTIONS (8)
  - Psoriasis [Unknown]
  - Skin discolouration [Not Recovered/Not Resolved]
  - Nasopharyngitis [Unknown]
  - Injection site haemorrhage [Unknown]
  - Skin exfoliation [Unknown]
  - Arthralgia [Unknown]
  - Injection site bruising [Unknown]
  - Skin plaque [Unknown]
